FAERS Safety Report 5854466-0 (Version None)
Quarter: 2008Q3

REPORT INFORMATION
  Report Type: 
  Country: None (occurrence: None)
  Receive Date: 20080822
  Receipt Date: 20080812
  Transmission Date: 20090109
  Serious: Yes (Other)
  Sender: FDA-Public Use
  Company Number: GB-PFIZER INC-2008064189

PATIENT

DRUGS (2)
  1. ZYVOX [Suspect]
  2. CITALOPRAM HYDROBROMIDE [Concomitant]

REACTIONS (1)
  - DEPRESSION [None]
